FAERS Safety Report 15410553 (Version 1)
Quarter: 2018Q3

REPORT INFORMATION
  Report Type: Spontaneous
  Country: US (occurrence: US)
  Receive Date: 20180919
  Receipt Date: 20180919
  Transmission Date: 20181010
  Serious: No
  Sender: FDA-Public Use
  Company Number: None

PATIENT
  Age: 34 Year
  Sex: Female

DRUGS (11)
  1. PROCHLORPER, PROAIR [Concomitant]
  2. TUMERIC, TOPAMAX [Concomitant]
  3. SENOKOT, RELPAX [Concomitant]
  4. CALCIUM, ALLERA [Concomitant]
  5. ALIGN [Concomitant]
     Active Substance: BIFIDOBACTERIUM LONGUM SUBSP. INFANTIS
  6. GABAPENTIN, FOLIC ACID [Concomitant]
  7. FLONASE, DEXILANT [Concomitant]
  8. PLAQUENIL, OXYCODONE [Concomitant]
  9. ZOFRAN, WELLBUTRIN [Concomitant]
  10. XELJANZ [Suspect]
     Active Substance: TOFACITINIB CITRATE
     Indication: RHEUMATOID ARTHRITIS
     Route: 048
     Dates: start: 20170817
  11. METHOTREXATE, IMITREX [Concomitant]

REACTIONS (3)
  - Blood potassium decreased [None]
  - Rheumatoid arthritis [None]
  - Impaired gastric emptying [None]

NARRATIVE: CASE EVENT DATE: 20180912
